FAERS Safety Report 15922138 (Version 1)
Quarter: 2019Q1

REPORT INFORMATION
  Report Type: Spontaneous
  Country: US (occurrence: US)
  Receive Date: 20190205
  Receipt Date: 20190205
  Transmission Date: 20190417
  Serious: Yes (Death)
  Sender: FDA-Public Use
  Company Number: None

PATIENT
  Age: 71 Year
  Sex: Male
  Weight: 133.2 kg

DRUGS (19)
  1. TAMSULOSIN 0.4MG [Concomitant]
     Active Substance: TAMSULOSIN
  2. WARFARIN 5MG [Concomitant]
     Active Substance: WARFARIN
  3. LANTUS SOLOSTAR [Concomitant]
     Active Substance: INSULIN GLARGINE
  4. VOTRIENT [Suspect]
     Active Substance: PAZOPANIB HYDROCHLORIDE
     Indication: RENAL CANCER
     Route: 048
     Dates: start: 20190103, end: 20190106
  5. RENA-VITE [Concomitant]
     Active Substance: ASCORBIC ACID\BIOTIN\CALCIUM PANTOTHENATE\CYANOCOBALAMIN\FOLIC ACID\NIACINAMIDE\PYRIDOXINE HYDROCHLORIDE\RIBOFLAVIN\THIAMINE MONONITRATE
  6. CLOPIDOGREL [Concomitant]
     Active Substance: CLOPIDOGREL BISULFATE
  7. ISOSORBIDE MONONITRATE ER 60MG [Concomitant]
  8. CRESTOR 40MG [Concomitant]
  9. CALCIUM ACETATE 667MG [Concomitant]
  10. COLACE [Concomitant]
     Active Substance: DOCUSATE SODIUM
  11. HYDROCORTISONE 2.5% [Concomitant]
     Active Substance: HYDROCORTISONE
  12. PANTOPRAZOLE 40MG [Concomitant]
     Active Substance: PANTOPRAZOLE SODIUM
  13. FENOFIBRATE 160MG [Concomitant]
  14. GLUCAGON EMERGENCY 1MG INJ [Concomitant]
  15. LIDOCAINE-PRILOCAINE 2.5-2.5% [Concomitant]
  16. FERROUS SULFATE 325MG [Concomitant]
     Active Substance: FERROUS SULFATE
  17. FUROSEMIDE 20MG [Concomitant]
     Active Substance: FUROSEMIDE
  18. LYRICA [Concomitant]
     Active Substance: PREGABALIN
  19. KETOCONAZOLE 2% [Concomitant]
     Active Substance: KETOCONAZOLE

REACTIONS (1)
  - Death [None]

NARRATIVE: CASE EVENT DATE: 20190106
